FAERS Safety Report 24697147 (Version 1)
Quarter: 2024Q4

REPORT INFORMATION
  Report Type: Spontaneous
  Country: AU (occurrence: AU)
  Receive Date: 20241204
  Receipt Date: 20241204
  Transmission Date: 20250115
  Serious: Yes (Life-Threatening)
  Sender: PFIZER
  Company Number: AU-PFIZER INC-202400312529

PATIENT
  Sex: Female

DRUGS (1)
  1. GENTAMICIN [Suspect]
     Active Substance: GENTAMICIN
     Dosage: 320 MG, 3 TIMES WEEKLY

REACTIONS (1)
  - Histamine level increased [Unknown]

NARRATIVE: CASE EVENT DATE: 20210101
